FAERS Safety Report 9725692 (Version 2)
Quarter: 2013Q4

REPORT INFORMATION
  Report Type: Spontaneous
  Country: BR (occurrence: BR)
  Receive Date: 20131203
  Receipt Date: 20131203
  Transmission Date: 20140711
  Serious: Yes (Other)
  Sender: FDA-Public Use
  Company Number: BR-SANOFI-AVENTIS-2013SA002256

PATIENT
  Age: 31 Year
  Sex: Female
  Weight: 82.9 kg

DRUGS (3)
  1. CLEXANE [Suspect]
     Indication: ANTIPHOSPHOLIPID SYNDROME
     Dosage: FORM: SYRINGE,ROUTE: INJECTION?STRENGTH : 40 MG DOSE:1 UNIT(S)
     Route: 051
     Dates: start: 20121211
  2. FOLIC ACID [Concomitant]
     Indication: NUTRITIONAL SUPPLEMENTATION
     Dosage: AFTER LUNCH
     Route: 048
     Dates: start: 20121110
  3. ACETYLSALICYLIC ACID [Concomitant]
     Indication: ANTIPHOSPHOLIPID SYNDROME
     Dosage: AFTER LUNCH
     Route: 048
     Dates: start: 20121211

REACTIONS (2)
  - Amniotic fluid volume decreased [Recovered/Resolved]
  - Exposure during pregnancy [Unknown]
